FAERS Safety Report 4802458-2 (Version None)
Quarter: 2005Q4

REPORT INFORMATION
  Report Type: 
  Country: None (occurrence: None)
  Receive Date: 20051011
  Receipt Date: 20050928
  Transmission Date: 20060501
  Serious: Yes (Hospitalization, Other)
  Sender: FDA-Public Use
  Company Number: 2005134913

PATIENT
  Age: 55 Year
  Sex: Female
  Weight: 82.5547 kg

DRUGS (5)
  1. ACCUPRIL [Suspect]
     Indication: HYPERTENSION
     Dosage: 80 MG (40 MG, 2 IN 1 D),
     Dates: start: 19970101
  2. NORVASC [Suspect]
     Indication: HYPERTENSION
     Dosage: 5 MG (5 MG, 1 IN 1 D),
     Dates: start: 19970101
  3. LEVOTHYROXINE SODIUM [Concomitant]
  4. REGLAN [Concomitant]
  5. HUMULIN 70/30 [Concomitant]

REACTIONS (7)
  - ANGINA PECTORIS [None]
  - BLOOD CHOLESTEROL INCREASED [None]
  - BUNDLE BRANCH BLOCK LEFT [None]
  - CARDIAC FAILURE CONGESTIVE [None]
  - CORONARY ARTERY OCCLUSION [None]
  - MYOCARDIAL INFARCTION [None]
  - THERAPY NON-RESPONDER [None]
